FAERS Safety Report 25193661 (Version 2)
Quarter: 2025Q2

REPORT INFORMATION
  Report Type: Spontaneous
  Country: ES (occurrence: ES)
  Receive Date: 20250414
  Receipt Date: 20250624
  Transmission Date: 20250717
  Serious: Yes (Death, Congenital Anomaly)
  Sender: ELI LILLY AND COMPANY
  Company Number: None

PATIENT
  Sex: Male

DRUGS (1)
  1. TALTZ [Suspect]
     Active Substance: IXEKIZUMAB
     Indication: Psoriasis
     Dosage: 80 MG, MONTHLY (1/M)
     Route: 064
     Dates: start: 20241230, end: 20250127

REACTIONS (2)
  - Congenital midline defect [Fatal]
  - Foetal exposure during pregnancy [Unknown]

NARRATIVE: CASE EVENT DATE: 20241230
